FAERS Safety Report 8475216-8 (Version None)
Quarter: 2012Q2

REPORT INFORMATION
  Report Type: 
  Country: None (occurrence: None)
  Receive Date: 20120628
  Receipt Date: 20120622
  Transmission Date: 20120825
  Serious: Yes (Hospitalization, Other)
  Sender: FDA-Public Use
  Company Number: FR-TEVA-345226ISR

PATIENT
  Sex: Female

DRUGS (13)
  1. EPIRUBICIN HYDROCHLORIDE [Suspect]
     Indication: BREAST CANCER
     Dosage: 4 COURSES
     Route: 042
     Dates: start: 20041203, end: 20050502
  2. TAXOTERE [Suspect]
     Indication: BREAST CANCER
     Dosage: 3 COURSES
     Route: 042
     Dates: start: 20050308, end: 20050419
  3. NAVELBINE [Suspect]
     Indication: BREAST CANCER
     Dosage: 90MG ON DAY 1 AND 8, 4 COURSES
     Route: 048
     Dates: start: 20070701, end: 20071101
  4. ESTRACYT [Suspect]
     Indication: BREAST CANCER
     Dosage: 4 DOSAGE FORMS;
     Route: 048
     Dates: start: 20091203, end: 20110101
  5. FLUOROURACIL [Suspect]
     Indication: BREAST CANCER
     Dosage: 4 COURSES
     Route: 042
     Dates: start: 20041203, end: 20050202
  6. FEMARA [Suspect]
     Indication: BREAST CANCER
     Dosage: 1 DOSAGE FORMS;
     Route: 048
     Dates: start: 20050401, end: 20061101
  7. DOXORUBICIN HCL [Suspect]
     Indication: BREAST CANCER
     Dosage: 17 COURSES
     Route: 042
     Dates: start: 20070827, end: 20091105
  8. ARIMIDEX [Suspect]
     Indication: BREAST CANCER
     Dosage: 1 DOSAGE FORMS;
     Route: 048
     Dates: start: 20080101, end: 20090201
  9. NAVOBAN [Suspect]
     Indication: BREAST CANCER
     Dosage: 4 COURSES
     Route: 048
     Dates: start: 20070701, end: 20071101
  10. XELODA [Suspect]
     Indication: BREAST CANCER
     Dosage: 4 COURSES
     Route: 048
     Dates: start: 20070801, end: 20071101
  11. CYCLOPHOSPHAMIDE [Suspect]
     Indication: BREAST CANCER
     Dosage: 4 COURSES
     Route: 042
     Dates: start: 20041203, end: 20050202
  12. AROMASIN [Suspect]
     Indication: BREAST CANCER
     Dosage: 1 DOSAGE FORMS;
     Route: 048
     Dates: start: 20061101, end: 20070201
  13. FASLODEX [Suspect]
     Indication: BREAST CANCER
     Route: 048
     Dates: start: 20070201, end: 20070501

REACTIONS (10)
  - GENERAL PHYSICAL CONDITION ABNORMAL [None]
  - DRUG INTOLERANCE [None]
  - METASTASES TO SKIN [None]
  - TONGUE NEOPLASM MALIGNANT STAGE UNSPECIFIED [None]
  - RECURRENT CANCER [None]
  - METASTASES TO PLEURA [None]
  - TREATMENT FAILURE [None]
  - METASTASES TO LUNG [None]
  - METASTASES TO BONE [None]
  - TOXICITY TO VARIOUS AGENTS [None]
